FAERS Safety Report 4823410-7 (Version None)
Quarter: 2005Q4

REPORT INFORMATION
  Report Type: 
  Country: None (occurrence: None)
  Receive Date: 20051107
  Receipt Date: 20051020
  Transmission Date: 20060501
  Serious: Yes (Other)
  Sender: FDA-Public Use
  Company Number: DSA_27316_2005

PATIENT
  Sex: Female

DRUGS (2)
  1. ATIVAN [Suspect]
     Dosage: DF
  2. MIRTAZAPINE [Suspect]
     Dosage: DF

REACTIONS (3)
  - DRUG INTERACTION [None]
  - DRUG WITHDRAWAL SYNDROME [None]
  - MENTAL IMPAIRMENT [None]
